FAERS Safety Report 14536807 (Version 1)
Quarter: 2018Q1

REPORT INFORMATION
  Report Type: Spontaneous
  Country: ZA (occurrence: ZA)
  Receive Date: 20180215
  Receipt Date: 20180215
  Transmission Date: 20180509
  Serious: Yes (Death)
  Sender: FDA-Public Use
  Company Number: ZA-MYLANLABS-2018M1010090

PATIENT
  Age: 91 Year
  Sex: Female

DRUGS (7)
  1. BIO AMIODARONE [Interacting]
     Active Substance: AMIODARONE HYDROCHLORIDE
     Indication: ARRHYTHMIA
     Dosage: 200 MG, UNK
     Route: 048
     Dates: end: 20180108
  2. OMEPRAZOLE. [Interacting]
     Active Substance: OMEPRAZOLE
     Indication: DYSPEPSIA
     Dosage: 20 MG, UNK
     Route: 048
     Dates: end: 20180108
  3. PURATA [Interacting]
     Active Substance: OXAZEPAM
     Indication: ANXIETY
     Dosage: 10 MG, UNK
     Route: 048
     Dates: end: 20180108
  4. ELTROXIN [Interacting]
     Active Substance: LEVOTHYROXINE
     Indication: HYPOTHYROIDISM
     Dosage: 100 ?G, UNK
     Route: 048
     Dates: end: 20180108
  5. MYLAN FUROSEMIDE 40 [Suspect]
     Active Substance: FUROSEMIDE
     Indication: DIURETIC THERAPY
     Dosage: 40 MG, UNK
     Route: 048
     Dates: end: 20180108
  6. ZARTAN [Interacting]
     Active Substance: LOSARTAN POTASSIUM
     Indication: HYPERTENSION
     Dosage: 50 MG, UNK
     Route: 048
     Dates: end: 20180108
  7. HEXARONE [Interacting]
     Active Substance: AMIODARONE
     Indication: ARRHYTHMIA
     Dosage: 200 MG, UNK
     Route: 048
     Dates: start: 201801, end: 20180108

REACTIONS (2)
  - Death [Fatal]
  - Drug interaction [Unknown]

NARRATIVE: CASE EVENT DATE: 20180108
